FAERS Safety Report 8382664-3 (Version None)
Quarter: 2012Q1

REPORT INFORMATION
  Report Type: 
  Country: None (occurrence: None)
  Receive Date: 20120323
  Receipt Date: 20110512
  Transmission Date: 20120608
  Serious: Yes (Other)
  Sender: FDA-Public Use
  Company Number: 163-21880-11051608

PATIENT
  Age: 62 Year
  Sex: Male
  Weight: 96.0718 kg

DRUGS (13)
  1. PREVACID [Concomitant]
  2. FLOMAX [Concomitant]
  3. MICARDICE (TELMISARTAN) [Concomitant]
  4. PREDNISONE TAB [Concomitant]
  5. REVLIMID [Suspect]
     Indication: MULTIPLE MYELOMA
     Dosage: 25 MG, 1 IN 1 D, PO ; 10-15MG, DAILY, PO
     Route: 048
     Dates: start: 20100326, end: 20110506
  6. REVLIMID [Suspect]
     Indication: MULTIPLE MYELOMA
     Dosage: 25 MG, 1 IN 1 D, PO ; 10-15MG, DAILY, PO
     Route: 048
     Dates: start: 20101001
  7. ASPIRIN [Concomitant]
  8. LIPITOR [Concomitant]
  9. NORVASC [Concomitant]
  10. NIASPAN [Concomitant]
  11. PLAVIX [Concomitant]
  12. OXYCONTIN [Concomitant]
  13. DILAUDID [Concomitant]

REACTIONS (5)
  - DYSPNOEA [None]
  - TREMOR [None]
  - FATIGUE [None]
  - PULMONARY EMBOLISM [None]
  - BACK PAIN [None]
